FAERS Safety Report 5212000-2 (Version None)
Quarter: 2007Q1

REPORT INFORMATION
  Report Type: 
  Country: None (occurrence: None)
  Receive Date: 20070118
  Receipt Date: 20070118
  Transmission Date: 20070707
  Serious: No
  Sender: FDA-Public Use
  Company Number: JP-JPN-A200700077

PATIENT
  Sex: Male

DRUGS (1)
  1. SEREVENT [Suspect]
     Indication: ASTHMA
     Dosage: 50MCG TWICE PER DAY
     Route: 055

REACTIONS (2)
  - LIP HAEMORRHAGE [None]
  - PHARMACEUTICAL PRODUCT COMPLAINT [None]
